FAERS Safety Report 8915215 (Version 1)
Quarter: 2012Q4

REPORT INFORMATION
  Report Type: 
  Country: US (occurrence: US)
  Receive Date: 20121119
  Receipt Date: 20121119
  Transmission Date: 20130627
  Serious: No
  Sender: FDA-Public Use
  Company Number: US-009507513-1211USA006017

PATIENT

DRUGS (2)
  1. SAPHRIS [Suspect]
     Indication: PSYCHOTIC DISORDER
     Dosage: 5 mg, UNK
  2. SAPHRIS [Suspect]
     Dosage: 10 mg, UNK

REACTIONS (2)
  - Therapeutic response unexpected [Unknown]
  - Ex-tobacco user [Unknown]
